FAERS Safety Report 26008908 (Version 1)
Quarter: 2025Q4

REPORT INFORMATION
  Report Type: Spontaneous
  Country: EU (occurrence: EU)
  Receive Date: 20251106
  Receipt Date: 20251106
  Transmission Date: 20260118
  Serious: Yes (Life-Threatening, Hospitalization, Other)
  Sender: STRIDES
  Company Number: EU-STRIDES ARCOLAB LIMITED-2025SP013812

PATIENT
  Age: 3 Year
  Sex: Female

DRUGS (4)
  1. ZOLPIDEM [Suspect]
     Active Substance: ZOLPIDEM TARTRATE
     Indication: Product used for unknown indication
     Dosage: UNK
     Route: 065
  2. MIDAZOLAM [Suspect]
     Active Substance: MIDAZOLAM
     Indication: Product used for unknown indication
     Dosage: UNK
     Route: 065
  3. THIOPENTAL [Concomitant]
     Active Substance: THIOPENTAL
     Indication: Product used for unknown indication
     Dosage: UNK
     Route: 065
  4. ACETAMINOPHEN [Concomitant]
     Active Substance: ACETAMINOPHEN
     Indication: Product used for unknown indication
     Dosage: UNK
     Route: 065

REACTIONS (12)
  - Cardiac arrest [Recovered/Resolved]
  - Loss of consciousness [Recovering/Resolving]
  - Cyanosis [Recovered/Resolved]
  - Seizure [Recovered/Resolved]
  - Intentional product misuse to child [Unknown]
  - Circulatory collapse [Recovered/Resolved]
  - Toxicity to various agents [Unknown]
  - Abdominal pain [Unknown]
  - Dyspnoea [Unknown]
  - Hypotension [Unknown]
  - Hypoxia [Recovering/Resolving]
  - Hypotonia [Recovered/Resolved]
